FAERS Safety Report 8376617-9 (Version None)
Quarter: 2012Q2

REPORT INFORMATION
  Report Type: 
  Country: None (occurrence: None)
  Receive Date: 20120522
  Receipt Date: 20120511
  Transmission Date: 20120825
  Serious: Yes (Other)
  Sender: FDA-Public Use
  Company Number: BR-PFIZER INC-2012116689

PATIENT
  Age: 64 Year
  Sex: Male
  Weight: 65 kg

DRUGS (4)
  1. LIPITOR [Concomitant]
     Indication: BLOOD CHOLESTEROL INCREASED
     Dosage: 10 MG, 1X/DAY
     Dates: start: 20060101
  2. LOSARTAN POTASSIUM [Concomitant]
     Indication: BLOOD PRESSURE INCREASED
     Dosage: 250 MG, 1X/DAY
     Dates: start: 20020101
  3. COSOPT [Concomitant]
     Indication: GLAUCOMA
     Dosage: 2 GTT, 1X/DAY
     Dates: start: 20060101
  4. XALATAN [Suspect]
     Indication: GLAUCOMA
     Dosage: 3 UG (TWO DROPS), 1X/DAY
     Route: 047
     Dates: start: 20060511

REACTIONS (1)
  - EYE DISORDER [None]
